FAERS Safety Report 12706016 (Version 2)
Quarter: 2016Q3

REPORT INFORMATION
  Report Type: Spontaneous
  Country: US (occurrence: US)
  Receive Date: 20160901
  Receipt Date: 20160901
  Transmission Date: 20161109
  Serious: No
  Sender: FDA-Public Use
  Company Number: US-JAZZ-2016-US-007825

PATIENT
  Age: 52 Year
  Sex: Female

DRUGS (16)
  1. PRILOSEC [Concomitant]
     Active Substance: OMEPRAZOLE MAGNESIUM
  2. ADVAIR HFA [Concomitant]
     Active Substance: FLUTICASONE PROPIONATE\SALMETEROL XINAFOATE
  3. XYZAL [Concomitant]
     Active Substance: LEVOCETIRIZINE DIHYDROCHLORIDE
  4. SINGULAIR [Concomitant]
     Active Substance: MONTELUKAST SODIUM
  5. XYREM [Suspect]
     Active Substance: SODIUM OXYBATE
     Indication: NARCOLEPSY
     Dosage: 2.25 G, BID
     Route: 048
     Dates: start: 201402, end: 201402
  6. XYREM [Suspect]
     Active Substance: SODIUM OXYBATE
     Indication: CATAPLEXY
     Dosage: 3 G, BID
     Route: 048
     Dates: start: 201402
  7. FLONASE [Concomitant]
     Active Substance: FLUTICASONE PROPIONATE
  8. PULMICORT TURBUHALER [Concomitant]
     Active Substance: BUDESONIDE
  9. VITAMIN D [Concomitant]
     Active Substance: CHOLECALCIFEROL
  10. ALBUTEROL SULFATE HFA [Concomitant]
  11. ZOFRAN ODT [Concomitant]
     Active Substance: ONDANSETRON HYDROCHLORIDE
  12. ATENOLOL. [Concomitant]
     Active Substance: ATENOLOL
  13. LISINOPRIL. [Concomitant]
     Active Substance: LISINOPRIL
  14. NUVIGIL [Concomitant]
     Active Substance: ARMODAFINIL
  15. LIPITOR [Concomitant]
     Active Substance: ATORVASTATIN CALCIUM
  16. SENOKOT-S [Concomitant]
     Active Substance: DOCUSATE SODIUM\SENNOSIDES

REACTIONS (1)
  - Asthma [Unknown]

NARRATIVE: CASE EVENT DATE: 201604
